FAERS Safety Report 8375807-9 (Version None)
Quarter: 2012Q1

REPORT INFORMATION
  Report Type: 
  Country: None (occurrence: None)
  Receive Date: 20120323
  Receipt Date: 20110324
  Transmission Date: 20120608
  Serious: Yes (Life-Threatening, Other)
  Sender: FDA-Public Use
  Company Number: 163-21880-11020057

PATIENT
  Age: 65 Year
  Sex: Male

DRUGS (4)
  1. REVLIMID [Suspect]
     Indication: PROSTATE CANCER
     Dosage: 5 MG, 1 IN 1 D, PO, 5 MG, 1 IN 1 D, PO, PO
     Route: 048
     Dates: start: 20060914, end: 20080424
  2. REVLIMID [Suspect]
     Indication: PROSTATE CANCER
     Dosage: 5 MG, 1 IN 1 D, PO, 5 MG, 1 IN 1 D, PO, PO
     Route: 048
     Dates: start: 20081024
  3. REVLIMID [Suspect]
     Indication: PROSTATE CANCER
     Dosage: 5 MG, 1 IN 1 D, PO, 5 MG, 1 IN 1 D, PO, PO
     Route: 048
     Dates: start: 20080708
  4. COUMADIN (WARAFARIN SODIUM) [Concomitant]

REACTIONS (1)
  - DEEP VEIN THROMBOSIS [None]
